FAERS Safety Report 12333266 (Version 1)
Quarter: 2016Q2

REPORT INFORMATION
  Report Type: Spontaneous
  Country: US (occurrence: US)
  Receive Date: 20160504
  Receipt Date: 20160504
  Transmission Date: 20160815
  Serious: No
  Sender: FDA-Public Use
  Company Number: US-BAYER-2016-086262

PATIENT
  Age: 80 Year
  Sex: Male
  Weight: 81.63 kg

DRUGS (1)
  1. MIRALAX [Suspect]
     Active Substance: POLYETHYLENE GLYCOL 3350
     Dosage: 1 DF, QD
     Route: 048
     Dates: start: 2014

REACTIONS (1)
  - Product use issue [None]

NARRATIVE: CASE EVENT DATE: 2014
